FAERS Safety Report 4453915-2 (Version None)
Quarter: 2004Q3

REPORT INFORMATION
  Report Type: 
  Country: None (occurrence: None)
  Receive Date: 20040826
  Receipt Date: 20040426
  Transmission Date: 20050211
  Serious: No
  Sender: FDA-Public Use
  Company Number: WAES 0404USA02311

PATIENT
  Sex: Female

DRUGS (2)
  1. ZETIA [Suspect]
     Indication: BLOOD CHOLESTEROL INCREASED
     Dosage: 10 MG/HS/PO
     Route: 048
     Dates: start: 20040326, end: 20040421
  2. PRAVACHOL [Concomitant]
     Indication: HYPERLIPIDAEMIA

REACTIONS (6)
  - ABDOMINAL DISTENSION [None]
  - MUSCULAR WEAKNESS [None]
  - MYALGIA [None]
  - PRURITUS [None]
  - RASH [None]
  - SWELLING FACE [None]
